FAERS Safety Report 6046293-9 (Version None)
Quarter: 2009Q1

REPORT INFORMATION
  Report Type: 
  Country: None (occurrence: None)
  Receive Date: 20090121
  Receipt Date: 20090121
  Transmission Date: 20090719
  Serious: Yes (Life-Threatening, Other)
  Sender: FDA-Public Use
  Company Number: None

PATIENT
  Age: 61 Year
  Sex: Male
  Weight: 87.0906 kg

DRUGS (2)
  1. CARVEDILOL [Suspect]
     Indication: HYPERTENSION
     Dates: start: 20080428, end: 20080618
  2. LISINOPRIL [Suspect]
     Indication: HYPERTENSION
     Dates: start: 20080428, end: 20080618

REACTIONS (6)
  - BLOOD PRESSURE INADEQUATELY CONTROLLED [None]
  - DIABETES MELLITUS INADEQUATE CONTROL [None]
  - DIZZINESS [None]
  - FEELING ABNORMAL [None]
  - PRESYNCOPE [None]
  - PYREXIA [None]
